FAERS Safety Report 5156831-6 (Version None)
Quarter: 2006Q4

REPORT INFORMATION
  Report Type: 
  Country: None (occurrence: None)
  Receive Date: 20061114
  Receipt Date: 20061102
  Transmission Date: 20070319
  Serious: Yes (Other)
  Sender: FDA-Public Use
  Company Number: HQWYE200102NOV06

PATIENT
  Sex: Female

DRUGS (1)
  1. PANTOPRAZOLE SODIUM [Suspect]
     Dosage: ORAL
     Route: 048

REACTIONS (4)
  - DYSPHAGIA [None]
  - LIP SWELLING [None]
  - SWOLLEN TONGUE [None]
  - WRONG TECHNIQUE IN DRUG USAGE PROCESS [None]
